FAERS Safety Report 8897510 (Version 1)
Quarter: 2012Q4

REPORT INFORMATION
  Report Type: 
  Country: US (occurrence: US)
  Receive Date: 20121108
  Receipt Date: 20121108
  Transmission Date: 20130627
  Serious: No
  Sender: FDA-Public Use
  Company Number: US-AMGEN-USASP2012012058

PATIENT
  Age: 33 Year
  Sex: Male
  Weight: 81.63 kg

DRUGS (2)
  1. ENBREL [Suspect]
     Indication: PRODUCT USED FOR UNKNOWN INDICATION
     Dosage: 50 mg, qwk
     Route: 058
  2. MULTIPLE VITAMINS [Concomitant]
     Dosage: UNK

REACTIONS (2)
  - Injection site pain [Unknown]
  - Injection site bruising [Unknown]
